FAERS Safety Report 8301261 (Version 2)
Quarter: 2012Q4

REPORT INFORMATION
  Report Type: 
  Country: US (occurrence: US)
  Receive Date: 20111219
  Receipt Date: 20121213
  Transmission Date: 20130627
  Serious: Yes (Hospitalization)
  Sender: FDA-Public Use
  Company Number: US-ASTRAZENECA-2011SE62404

PATIENT
  Age: 67 Year
  Sex: Female

DRUGS (3)
  1. ROSUVASTATIN [Suspect]
     Indication: DYSLIPIDAEMIA
     Route: 048
  2. ROSUVASTATIN [Suspect]
     Indication: DYSLIPIDAEMIA
     Route: 048
  3. CLONIDINE [Concomitant]

REACTIONS (1)
  - Pancreatitis acute [Recovered/Resolved]
